FAERS Safety Report 14857817 (Version 3)
Quarter: 2018Q3

REPORT INFORMATION
  Report Type: Report from Study
  Country: US (occurrence: US)
  Receive Date: 20180508
  Receipt Date: 20180821
  Transmission Date: 20181010
  Serious: Yes (Death, Other)
  Sender: FDA-Public Use
  Company Number: US-CIPLA (EU) LIMITED-2018US17214

PATIENT

DRUGS (10)
  1. PACLITAXEL. [Suspect]
     Active Substance: PACLITAXEL
     Indication: ADENOCARCINOMA PANCREAS
     Dosage: 125 MG/M2, ON DAYS 1 AND 8 EVERY 21 DAYS
  2. PEMBROLIZUMAB. [Suspect]
     Active Substance: PEMBROLIZUMAB
     Dosage: UNK
  3. GEMCITABINE [Suspect]
     Active Substance: GEMCITABINE\GEMCITABINE HYDROCHLORIDE
     Dosage: 800 MG/M2 ON DAY 1 AND DAY 8 EVERY 21 DAYS
  4. PEMBROLIZUMAB. [Suspect]
     Active Substance: PEMBROLIZUMAB
     Indication: ADENOCARCINOMA PANCREAS
     Dosage: 2 MG/KG, OVER 30 MIN EVERY 21 DAYS
     Route: 042
  5. GEMCITABINE [Suspect]
     Active Substance: GEMCITABINE\GEMCITABINE HYDROCHLORIDE
     Dosage: CYCLE 7 DAY 8, DOSE REDUCED
  6. GEMCITABINE [Suspect]
     Active Substance: GEMCITABINE\GEMCITABINE HYDROCHLORIDE
     Indication: ADENOCARCINOMA PANCREAS
     Dosage: 1000 MG/M2, ON DAYS 1 AND 8 EVERY 21 DAYS
  7. PACLITAXEL. [Suspect]
     Active Substance: PACLITAXEL
     Dosage: 100 MG/M2, ON DAYS 1 AND 8 EVERY 21 DAYS
  8. PACLITAXEL. [Suspect]
     Active Substance: PACLITAXEL
     Dosage: CYCLE 11 DAY 1, DOSE REDUCED
     Route: 065
  9. GEMCITABINE [Suspect]
     Active Substance: GEMCITABINE\GEMCITABINE HYDROCHLORIDE
     Dosage: CYCLE 11 DAY 1, DOSE REDUCED
  10. PACLITAXEL. [Suspect]
     Active Substance: PACLITAXEL
     Dosage: CYCLE 7 DAY 8, DOSE REDUCED
     Route: 065

REACTIONS (31)
  - Device related infection [Unknown]
  - Chronic obstructive pulmonary disease [Unknown]
  - Oedema peripheral [Unknown]
  - Pyrexia [Unknown]
  - Anaemia [Unknown]
  - Thrombotic stroke [Unknown]
  - Dysaesthesia [Unknown]
  - Sinusitis [Unknown]
  - Epistaxis [Unknown]
  - Pruritus [Unknown]
  - Blood creatinine increased [Unknown]
  - Pain in extremity [Unknown]
  - Dysgeusia [Unknown]
  - Hypomagnesaemia [Unknown]
  - Stomatitis [Unknown]
  - Alanine aminotransferase increased [Unknown]
  - Arthralgia [Unknown]
  - Diarrhoea [Unknown]
  - Fatigue [Unknown]
  - Abdominal pain [Unknown]
  - Rash [Unknown]
  - Death [Fatal]
  - Hyponatraemia [Unknown]
  - Dyspnoea [Unknown]
  - Aspartate aminotransferase increased [Unknown]
  - Chills [Unknown]
  - Upper respiratory tract infection [Unknown]
  - Pneumonia [Unknown]
  - Capillary leak syndrome [Unknown]
  - Hypoalbuminaemia [Unknown]
  - Insomnia [Unknown]
